FAERS Safety Report 9574878 (Version 2)
Quarter: 2013Q4

REPORT INFORMATION
  Report Type: Spontaneous
  Country: US (occurrence: US)
  Receive Date: 20131001
  Receipt Date: 20131031
  Transmission Date: 20140711
  Serious: No
  Sender: FDA-Public Use
  Company Number: US-009507513-1309USA014339

PATIENT
  Age: 48 Year
  Sex: Female
  Weight: 86.17 kg

DRUGS (2)
  1. OXYTROL [Suspect]
     Indication: HYPERTONIC BLADDER
     Dosage: 3.9 MG, QD
     Route: 062
     Dates: start: 20130903, end: 20130909
  2. LEVOTHYROXINE SODIUM [Concomitant]
     Indication: HYPOTHYROIDISM
     Dosage: UNK, UNKNOWN

REACTIONS (3)
  - Drug ineffective [Unknown]
  - Underdose [Unknown]
  - Product quality issue [Not Recovered/Not Resolved]
